FAERS Safety Report 24221141 (Version 1)
Quarter: 2024Q3

REPORT INFORMATION
  Report Type: Spontaneous
  Country: CA (occurrence: CA)
  Receive Date: 20240819
  Receipt Date: 20240819
  Transmission Date: 20241017
  Serious: Yes (Other)
  Sender: AUROBINDO
  Company Number: CA-AUROBINDO-AUR-APL-2024-040610

PATIENT
  Age: 43 Year
  Sex: Male

DRUGS (5)
  1. EZETIMIBE [Suspect]
     Active Substance: EZETIMIBE
     Indication: Product used for unknown indication
     Dosage: 10 MILLIGRAM
     Route: 065
  2. LEQVIO [Suspect]
     Active Substance: INCLISIRAN SODIUM
     Indication: Type II hyperlipidaemia
     Dosage: UNK
     Route: 058
  3. LEQVIO [Suspect]
     Active Substance: INCLISIRAN SODIUM
     Indication: Arteriosclerosis
  4. LEQVIO [Suspect]
     Active Substance: INCLISIRAN SODIUM
     Indication: Type II hyperlipidaemia
     Dosage: UNK
     Route: 065
  5. LEQVIO [Suspect]
     Active Substance: INCLISIRAN SODIUM
     Indication: Arteriosclerosis

REACTIONS (1)
  - Acute myocardial infarction [Unknown]
